FAERS Safety Report 20405407 (Version 2)
Quarter: 2022Q1

REPORT INFORMATION
  Report Type: Other
  Country: US (occurrence: None)
  Receive Date: 20220131
  Receipt Date: 20220209
  Transmission Date: 20220423
  Serious: Yes (Hospitalization)
  Sender: FDA-Public Use
  Company Number: US-ROCHE-2567449

PATIENT
  Age: 47 Year
  Sex: Female
  Weight: 90.800 kg

DRUGS (11)
  1. OCREVUS [Suspect]
     Active Substance: OCRELIZUMAB
     Indication: Relapsing-remitting multiple sclerosis
     Route: 042
     Dates: start: 20190905
  2. OCREVUS [Suspect]
     Active Substance: OCRELIZUMAB
     Indication: Relapsing multiple sclerosis
     Dosage: /SEP/2019
     Route: 042
     Dates: start: 20190919
  3. OCREVUS [Suspect]
     Active Substance: OCRELIZUMAB
     Route: 042
  4. ARMODAFINIL [Concomitant]
     Active Substance: ARMODAFINIL
     Indication: Fatigue
     Route: 048
     Dates: start: 20200219
  5. METOPROLOL [Concomitant]
     Active Substance: METOPROLOL
  6. FAMOTIDINE [Concomitant]
     Active Substance: FAMOTIDINE
  7. OXYBUTYNIN [Concomitant]
     Active Substance: OXYBUTYNIN
  8. LEVOTHYROXINE [Concomitant]
     Active Substance: LEVOTHYROXINE
  9. TIZANIDINE [Concomitant]
     Active Substance: TIZANIDINE
  10. MAGNESIUM [Concomitant]
     Active Substance: MAGNESIUM
  11. ADDERALL [Concomitant]
     Active Substance: AMPHETAMINE ASPARTATE\AMPHETAMINE SULFATE\DEXTROAMPHETAMINE SACCHARATE\DEXTROAMPHETAMINE SULFATE

REACTIONS (12)
  - Multiple sclerosis relapse [Recovered/Resolved with Sequelae]
  - Gait disturbance [Not Recovered/Not Resolved]
  - Fatigue [Not Recovered/Not Resolved]
  - Asthenia [Not Recovered/Not Resolved]
  - Multiple sclerosis relapse [Recovered/Resolved]
  - Therapeutic response decreased [Unknown]
  - Gastrooesophageal reflux disease [Unknown]
  - Cardiac flutter [Not Recovered/Not Resolved]
  - Micturition urgency [Unknown]
  - Initial insomnia [Unknown]
  - Insomnia [Unknown]
  - B-lymphocyte abnormalities [Unknown]

NARRATIVE: CASE EVENT DATE: 20200101
